FAERS Safety Report 12201380 (Version 1)
Quarter: 2016Q1

REPORT INFORMATION
  Report Type: Spontaneous
  Country: US (occurrence: US)
  Receive Date: 20160322
  Receipt Date: 20160322
  Transmission Date: 20160526
  Serious: No
  Sender: FDA-Public Use
  Company Number: US-SA-2015SA026129

PATIENT
  Age: 73 Year
  Sex: Female

DRUGS (3)
  1. ANTIBIOTICS [Concomitant]
     Active Substance: UNSPECIFIED INGREDIENT
  2. NASACORT ALLERGY 24HR [Suspect]
     Active Substance: TRIAMCINOLONE ACETONIDE
     Dosage: TAKEN FROM: 2 WEEKS
     Route: 065
  3. MUCINEX [Concomitant]
     Active Substance: GUAIFENESIN
     Dosage: TOOK FOR 2 DAYS

REACTIONS (1)
  - Dry mouth [Unknown]
